FAERS Safety Report 9767877 (Version 1)
Quarter: 2013Q3

REPORT INFORMATION
  Report Type: Spontaneous
  Country: DE (occurrence: None)
  Receive Date: 20130827
  Receipt Date: 20130827
  Transmission Date: 20140515
  Serious: Yes (Death, Hospitalization, Other)
  Sender: FDA-Public Use
  Company Number: 062-21660-13070440

PATIENT
  Age: 66 Year
  Sex: Female

DRUGS (6)
  1. ABRAXANE [Suspect]
     Indication: BREAST CANCER METASTATIC
     Dosage: 150 MG/M2, D1, D8, D15 EVERY 28 DAYS, IV
     Route: 042
     Dates: start: 20120628, end: 20120712
  2. FASLODEX (FULVESTRANT) (UNKNOWN) [Concomitant]
  3. ZOMETA (ZOLEDRONIC ACID) (UNKNOWN) [Concomitant]
  4. KEVATRIL (GRANISETRON HYDROCHLORIDE) (UNKNOWN) [Concomitant]
  5. CLEXANE (HEPARIN-FRACTION, SODIUM SALT) (UNKNOWN) [Concomitant]
  6. CALCIUM (CALCIUM) (UNKNOWN) [Concomitant]

REACTIONS (20)
  - Metastases to liver [None]
  - Hepatic failure [None]
  - Neuropathy peripheral [None]
  - Metastases to lung [None]
  - Malignant neoplasm progression [None]
  - Pneumonia [None]
  - Palmar-plantar erythrodysaesthesia syndrome [None]
  - Catheter site infection [None]
  - Fatigue [None]
  - Alopecia [None]
  - Nausea [None]
  - Implant site necrosis [None]
  - Metastases to bone [None]
  - Wound dehiscence [None]
  - Malignant pleural effusion [None]
  - Hepatic necrosis [None]
  - Renal ischaemia [None]
  - Renal venous congestion [None]
  - Uterine atrophy [None]
  - Arteriosclerosis [None]
